FAERS Safety Report 6658019-6 (Version None)
Quarter: 2010Q1

REPORT INFORMATION
  Report Type: 
  Country: None (occurrence: None)
  Receive Date: 20100330
  Receipt Date: 20100329
  Transmission Date: 20100710
  Serious: Yes (Hospitalization)
  Sender: FDA-Public Use
  Company Number: CHPA2010US05629

PATIENT
  Age: 74 Year
  Sex: Male
  Weight: 63.492 kg

DRUGS (3)
  1. MAALOX ANTACID WITH ANTI-GAS REGULAR (NCH) [Suspect]
     Indication: ERUCTATION
     Dosage: 3 TSP, QID
     Route: 048
     Dates: start: 20100321, end: 20100325
  2. MAALOX ANTACID WITH ANTI-GAS REGULAR (NCH) [Suspect]
     Indication: ABDOMINAL PAIN UPPER
  3. MAALOX ANTACID WITH ANTI-GAS REGULAR (NCH) [Suspect]
     Indication: GASTROINTESTINAL SOUNDS ABNORMAL

REACTIONS (3)
  - FAECES DISCOLOURED [None]
  - GASTRIC ULCER HAEMORRHAGE [None]
  - OFF LABEL USE [None]
